FAERS Safety Report 8878831 (Version 2)
Quarter: 2012Q4

REPORT INFORMATION
  Report Type: 
  Country: US (occurrence: US)
  Receive Date: 20121030
  Receipt Date: 20121220
  Transmission Date: 20130627
  Serious: No
  Sender: FDA-Public Use
  Company Number: US-VERTEX PHARMACEUTICAL INC.-2012-023621

PATIENT
  Sex: Male

DRUGS (13)
  1. VX-950 (TELAPREVIR) [Suspect]
     Indication: HEPATITIS C
     Dosage: 750 mg, tid
     Route: 048
     Dates: start: 2012
  2. RIBASPHERE [Suspect]
     Indication: HEPATITIS C
     Dosage: 600 mg, bid
     Route: 048
     Dates: start: 2012
  3. PEGASYS [Suspect]
     Indication: HEPATITIS C
     Dosage: 180 ?g,weekly
     Route: 058
     Dates: start: 2012
  4. NOVOLOG [Concomitant]
  5. MULTIVITAMIN                       /00097801/ [Concomitant]
     Dosage: UNK, qd
  6. EVENING PRIMROSE [Concomitant]
     Dosage: UNK, qd
  7. ASPIRIN (E.C.) [Concomitant]
     Dosage: 81 mg, UNK
  8. VITAMIN D /00107901/ [Concomitant]
     Dosage: 1000 ut, UNK
  9. FISH OIL [Concomitant]
     Dosage: 1000 mg, UNK
  10. CVS MILK THISTLE [Concomitant]
     Dosage: 175 mg, UNK
  11. FLAXSEED OIL [Concomitant]
     Dosage: 1000 mg, UNK
  12. VASOTEC                            /00574902/ [Concomitant]
     Dosage: 5 mg, qd
  13. N-ACETYL-L-CYSTEINE [Concomitant]

REACTIONS (6)
  - Headache [Unknown]
  - Abdominal pain upper [Unknown]
  - Back pain [Unknown]
  - Decreased appetite [Unknown]
  - Fatigue [Unknown]
  - Anaemia [Unknown]
